FAERS Safety Report 8255044-9 (Version None)
Quarter: 2012Q1

REPORT INFORMATION
  Report Type: 
  Country: None (occurrence: None)
  Receive Date: 20120329
  Receipt Date: 20120320
  Transmission Date: 20120608
  Serious: Yes (Hospitalization)
  Sender: FDA-Public Use
  Company Number: 2012SP016201

PATIENT
  Age: 30 Year
  Sex: Female
  Weight: 95.2554 kg

DRUGS (1)
  1. IMPLANON [Suspect]
     Indication: CONTRACEPTION
     Dates: start: 20110105

REACTIONS (4)
  - MOVEMENT DISORDER [None]
  - HAEMORRHAGE [None]
  - PANIC ATTACK [None]
  - JOINT SWELLING [None]
